FAERS Safety Report 5093850-2 (Version None)
Quarter: 2006Q3

REPORT INFORMATION
  Report Type: 
  Country: None (occurrence: None)
  Receive Date: 20060831
  Receipt Date: 20060828
  Transmission Date: 20061208
  Serious: Yes (Other)
  Sender: FDA-Public Use
  Company Number: US-JNJFOC-20060404092

PATIENT
  Sex: Female
  Weight: 42.18 kg

DRUGS (8)
  1. REMICADE [Suspect]
     Route: 042
  2. REMICADE [Suspect]
     Route: 042
  3. REMICADE [Suspect]
     Indication: RHEUMATOID ARTHRITIS
     Route: 042
  4. PREVICID [Concomitant]
     Indication: GASTROOESOPHAGEAL REFLUX DISEASE
  5. PLAQUENIL [Concomitant]
     Indication: RHEUMATOID ARTHRITIS
  6. PLAQUENIL [Concomitant]
     Indication: EYE DISORDER
  7. COREG [Concomitant]
     Indication: CARDIAC FAILURE
  8. LISINOPRIL [Concomitant]
     Indication: CARDIAC FAILURE

REACTIONS (6)
  - BACK PAIN [None]
  - BONE NEOPLASM [None]
  - LUNG NEOPLASM [None]
  - METASTASES TO LUNG [None]
  - NEOPLASM [None]
  - SPINAL DISORDER [None]
